FAERS Safety Report 7304513-4 (Version None)
Quarter: 2011Q1

REPORT INFORMATION
  Report Type: 
  Country: None (occurrence: None)
  Receive Date: 20110221
  Receipt Date: 20110203
  Transmission Date: 20110831
  Serious: Yes (Death, Other)
  Sender: FDA-Public Use
  Company Number: JP-AMGEN-JPNCT2010011962

PATIENT
  Age: 83 Year
  Sex: Female
  Weight: 40 kg

DRUGS (4)
  1. VOLTAREN SUPPO [Concomitant]
     Dosage: UNK
     Route: 054
  2. CAPECITABINE [Concomitant]
     Indication: COLORECTAL CANCER
     Dosage: 3000 MG, QD
     Route: 048
     Dates: start: 20100728, end: 20100907
  3. PANITUMUMAB [Suspect]
     Indication: COLORECTAL CANCER
     Dosage: 6 MG/KG, Q2WK
     Route: 041
     Dates: start: 20100727, end: 20100825
  4. LOXONIN [Concomitant]
     Dosage: UNK
     Route: 048

REACTIONS (5)
  - PALMAR-PLANTAR ERYTHRODYSAESTHESIA SYNDROME [None]
  - STOMATITIS [None]
  - DERMATITIS ACNEIFORM [None]
  - PARONYCHIA [None]
  - COLORECTAL CANCER [None]
